FAERS Safety Report 6244474-2 (Version None)
Quarter: 2009Q2

REPORT INFORMATION
  Report Type: 
  Country: None (occurrence: None)
  Receive Date: 20090623
  Receipt Date: 20090609
  Transmission Date: 20091009
  Serious: Yes (Death)
  Sender: FDA-Public Use
  Company Number: POMP-1000286

PATIENT
  Age: 5 Month
  Sex: Male

DRUGS (7)
  1. MYOZYME [Suspect]
     Indication: GLYCOGEN STORAGE DISEASE TYPE II
     Dosage: 20 MG/KG, ONCE, INTRAVENOUS
     Route: 042
     Dates: start: 20080813, end: 20080813
  2. ADRENERGICS, INHALANTS [Concomitant]
  3. CORTICOSTEROID NOS (CORTICOSTEROID NOS) [Concomitant]
  4. ANTIBIOTICS INTRAVENOUS INFUSION [Concomitant]
  5. PROPRANOLOL [Concomitant]
  6. CAPTOPRIL [Concomitant]
  7. FUROSEMIDE [Concomitant]

REACTIONS (3)
  - CARDIO-RESPIRATORY ARREST [None]
  - CARDIOGENIC SHOCK [None]
  - SEPTIC SHOCK [None]
